FAERS Safety Report 9739090 (Version 1)
Quarter: 2013Q4

REPORT INFORMATION
  Report Type: Spontaneous
  Country: FR (occurrence: FR)
  Receive Date: 20131209
  Receipt Date: 20131209
  Transmission Date: 20140711
  Serious: Yes (Hospitalization)
  Sender: FDA-Public Use
  Company Number: FR-ROCHE-1313409

PATIENT
  Age: 25 Year
  Sex: Male

DRUGS (4)
  1. VALIUM [Suspect]
     Indication: PSYCHIATRIC DECOMPENSATION
     Route: 048
     Dates: start: 20130808, end: 20130812
  2. ZYPREXA [Suspect]
     Indication: PSYCHIATRIC DECOMPENSATION
     Dosage: TREATMENT DURATION= 9 DAYS
     Route: 048
     Dates: start: 20130808, end: 20130816
  3. LOXAPAC [Suspect]
     Indication: PSYCHIATRIC DECOMPENSATION
     Dosage: ORAL SOLUTION
     Route: 048
     Dates: start: 20130808, end: 20130812
  4. THERALENE (FRANCE) [Suspect]
     Indication: PSYCHIATRIC DECOMPENSATION
     Route: 048
     Dates: start: 20130813, end: 20130813

REACTIONS (1)
  - Stevens-Johnson syndrome [Unknown]
